FAERS Safety Report 16853126 (Version 2)
Quarter: 2019Q4

REPORT INFORMATION
  Report Type: Spontaneous
  Country: US (occurrence: US)
  Receive Date: 20190925
  Receipt Date: 20191009
  Transmission Date: 20200122
  Serious: No
  Sender: FDA-Public Use
  Company Number: US-TEVA-2019-US-1111435

PATIENT
  Age: 70 Year
  Sex: Female

DRUGS (2)
  1. FAMOTIDINE TABLET [Suspect]
     Active Substance: FAMOTIDINE
     Dosage: 60 MILLIGRAM DAILY;
     Route: 065
     Dates: start: 20190717
  2. PROPRANOLOL [Concomitant]
     Active Substance: PROPRANOLOL HYDROCHLORIDE
     Indication: CARDIAC DISORDER
     Route: 065
     Dates: start: 1970

REACTIONS (4)
  - Product substitution issue [Unknown]
  - Somnolence [Unknown]
  - Incorrect dose administered [Unknown]
  - Feeling abnormal [Unknown]
